FAERS Safety Report 7832414-1 (Version None)
Quarter: 2011Q4

REPORT INFORMATION
  Report Type: 
  Country: None (occurrence: None)
  Receive Date: 20111022
  Receipt Date: 20100914
  Transmission Date: 20120403
  Serious: No
  Sender: FDA-Public Use
  Company Number: US-BAYER-201034138NA

PATIENT
  Age: 50 Year
  Sex: Female

DRUGS (1)
  1. ULTRAVIST (PHARMACY BULK) [Suspect]
     Indication: COMPUTERISED TOMOGRAM
     Dosage: 125CC,RT ANTICUB WITH POWER INJECTOR@2.5ML/CC
     Route: 042
     Dates: start: 20100913, end: 20100913

REACTIONS (2)
  - ERYTHEMA [None]
  - PYREXIA [None]
